FAERS Safety Report 7765107-X (Version None)
Quarter: 2011Q3

REPORT INFORMATION
  Report Type: 
  Country: None (occurrence: None)
  Receive Date: 20110921
  Receipt Date: 20110915
  Transmission Date: 20111222
  Serious: Yes (Other)
  Sender: FDA-Public Use
  Company Number: US-ROCHE-802679

PATIENT
  Sex: Female

DRUGS (4)
  1. ACCUTANE [Suspect]
     Route: 065
     Dates: start: 20080101
  2. AMNESTEEM [Suspect]
     Indication: ACNE
     Route: 065
  3. CLARAVIS [Suspect]
     Indication: ACNE
     Route: 065
  4. SOTRET [Suspect]
     Indication: ACNE
     Route: 065
     Dates: start: 20080101

REACTIONS (2)
  - ANXIETY [None]
  - INFLAMMATORY BOWEL DISEASE [None]
